FAERS Safety Report 24590260 (Version 4)
Quarter: 2025Q2

REPORT INFORMATION
  Report Type: Report from Study
  Country: GB (occurrence: GB)
  Receive Date: 20241107
  Receipt Date: 20250512
  Transmission Date: 20250717
  Serious: Yes (Hospitalization, Other)
  Sender: NOVARTIS
  Company Number: GB-002147023-NVSC2023GB255506

PATIENT
  Age: 48 Year
  Sex: Female

DRUGS (4)
  1. MAYZENT [Suspect]
     Active Substance: SIPONIMOD
     Indication: Secondary progressive multiple sclerosis
     Dosage: 2 MG, QD
     Route: 048
     Dates: start: 202311
  2. MAYZENT [Suspect]
     Active Substance: SIPONIMOD
     Dosage: 2 MG, QD
     Route: 048
     Dates: start: 20231103
  3. MAYZENT [Suspect]
     Active Substance: SIPONIMOD
     Dosage: 1 MG, QD
     Route: 048
  4. GABAPENTIN [Concomitant]
     Active Substance: GABAPENTIN
     Indication: Product used for unknown indication
     Route: 065

REACTIONS (20)
  - Sepsis [Unknown]
  - Urinary tract infection [Not Recovered/Not Resolved]
  - Cervix carcinoma [Unknown]
  - Headache [Unknown]
  - Fall [Unknown]
  - Abdominal discomfort [Unknown]
  - Vomiting [Unknown]
  - Dyspepsia [Unknown]
  - Mobility decreased [Not Recovered/Not Resolved]
  - Anaemia [Unknown]
  - Urine odour abnormal [Unknown]
  - Pollakiuria [Unknown]
  - Abdominal pain lower [Unknown]
  - Fatigue [Unknown]
  - Dyspnoea [Unknown]
  - Infection [Unknown]
  - Blood test abnormal [Unknown]
  - Peripheral swelling [Unknown]
  - Pain in extremity [Unknown]
  - Arthritis [Unknown]

NARRATIVE: CASE EVENT DATE: 20231101
